FAERS Safety Report 8069943-4 (Version None)
Quarter: 2012Q1

REPORT INFORMATION
  Report Type: 
  Country: None (occurrence: None)
  Receive Date: 20120125
  Receipt Date: 20120110
  Transmission Date: 20120608
  Serious: Yes (Other)
  Sender: FDA-Public Use
  Company Number: AU-COVIDIEN/TYCO HEALTHCARE/MALLINCKRODT-T201102969

PATIENT
  Sex: Male

DRUGS (3)
  1. HYPNOTICS AND SEDATIVES [Suspect]
     Indication: PRODUCT USED FOR UNKNOWN INDICATION
  2. EXALGO [Suspect]
     Indication: PAIN
     Dosage: 40 MG, QD
     Route: 048
     Dates: start: 20111203, end: 20111210
  3. OXYCONTIN [Suspect]
     Indication: POST-TRAUMATIC STRESS DISORDER

REACTIONS (16)
  - VISION BLURRED [None]
  - NASAL DISCOMFORT [None]
  - POLLAKIURIA [None]
  - DELIRIUM [None]
  - NIGHTMARE [None]
  - BALANCE DISORDER [None]
  - DECREASED APPETITE [None]
  - PRURITUS [None]
  - MUSCLE SPASMS [None]
  - ANXIETY [None]
  - CONSTIPATION [None]
  - PALPITATIONS [None]
  - HEADACHE [None]
  - INSOMNIA [None]
  - PARAESTHESIA [None]
  - DRUG INEFFECTIVE [None]
